FAERS Safety Report 19886642 (Version 1)
Quarter: 2021Q3

REPORT INFORMATION
  Report Type: Spontaneous
  Country: PR (occurrence: PR)
  Receive Date: 20210928
  Receipt Date: 20210928
  Transmission Date: 20211014
  Serious: No
  Sender: FDA-Public Use
  Company Number: PR-JNJFOC-20210935014

PATIENT
  Sex: Male
  Weight: 54.48 kg

DRUGS (7)
  1. STELARA [Suspect]
     Active Substance: USTEKINUMAB
     Indication: CROHN^S DISEASE
     Route: 058
  2. PREDNISONE. [Concomitant]
     Active Substance: PREDNISONE
     Route: 065
  3. METHOTREXATE. [Concomitant]
     Active Substance: METHOTREXATE
     Route: 065
  4. FERROUS SULFATE. [Concomitant]
     Active Substance: FERROUS SULFATE
     Indication: PRODUCT USED FOR UNKNOWN INDICATION
     Route: 065
  5. PEPCID [Concomitant]
     Active Substance: FAMOTIDINE
     Indication: ABDOMINAL DISCOMFORT
     Route: 048
     Dates: start: 2020
  6. COVID?19 VACCINE [Concomitant]
     Indication: COVID-19
     Dosage: 1ST DOSE OF PFIZER COVID VACCINE ON 07?MAY?2021 AND 2ND DOSE ON 28?MAY?2021
     Route: 065
  7. PREDNISONE. [Concomitant]
     Active Substance: PREDNISONE
     Route: 065

REACTIONS (3)
  - Drug ineffective [Unknown]
  - Product use issue [Unknown]
  - Off label use [Unknown]
